FAERS Safety Report 4949086-6 (Version None)
Quarter: 2006Q1

REPORT INFORMATION
  Report Type: 
  Country: None (occurrence: None)
  Receive Date: 20060321
  Receipt Date: 20051005
  Transmission Date: 20060701
  Serious: Yes (Hospitalization)
  Sender: FDA-Public Use
  Company Number: US-MERCK-0510USA04465

PATIENT
  Age: 55 Year
  Sex: Male
  Weight: 87 kg

DRUGS (8)
  1. VIOXX [Suspect]
     Indication: ARTHRITIS
     Route: 048
     Dates: start: 19990101, end: 20040914
  2. ALBUTEROL [Concomitant]
     Indication: ASTHMA
     Route: 065
  3. XOPENEX [Concomitant]
     Indication: ASTHMA
     Route: 065
  4. SEREVENT [Concomitant]
     Route: 065
  5. AVALIDE [Concomitant]
     Indication: CARDIAC DISORDER
     Route: 065
  6. LIPITOR [Concomitant]
     Route: 065
  7. PRILOSEC [Concomitant]
     Route: 065
  8. ATROVENT [Concomitant]
     Route: 065

REACTIONS (8)
  - BLOOD PRESSURE INCREASED [None]
  - CARDIOMYOPATHY [None]
  - CARDIOVASCULAR DISORDER [None]
  - DIZZINESS [None]
  - DIZZINESS POSTURAL [None]
  - DYSPNOEA [None]
  - DYSPNOEA EXACERBATED [None]
  - GALLBLADDER DISORDER [None]
